FAERS Safety Report 10195565 (Version 1)
Quarter: 2014Q2

REPORT INFORMATION
  Report Type: Spontaneous
  Country: DE (occurrence: DE)
  Receive Date: 20140527
  Receipt Date: 20140527
  Transmission Date: 20141212
  Serious: Yes (Hospitalization)
  Sender: FDA-Public Use
  Company Number: PHHY2014DE061437

PATIENT
  Age: 73 Year
  Sex: Male
  Weight: 93 kg

DRUGS (2)
  1. LEVETIRACETAM [Suspect]
     Indication: PARTIAL SEIZURES WITH SECONDARY GENERALISATION
     Dosage: 500 MG, BID
  2. LEVETIRACETAM [Suspect]
     Dosage: 500 MG, UNK

REACTIONS (10)
  - Foot fracture [Unknown]
  - Gait disturbance [Unknown]
  - Pulse absent [Unknown]
  - Fatigue [Recovered/Resolved]
  - Somnolence [Not Recovered/Not Resolved]
  - Stupor [Recovered/Resolved]
  - Skin ulcer [Unknown]
  - Agitation [Unknown]
  - Anaemia [Unknown]
  - Overdose [Unknown]
